FAERS Safety Report 24695378 (Version 2)
Quarter: 2025Q2

REPORT INFORMATION
  Report Type: Report from Study
  Country: CA (occurrence: CA)
  Receive Date: 20241204
  Receipt Date: 20250624
  Transmission Date: 20250717
  Serious: Yes (Other)
  Sender: CELLTRION
  Company Number: CA-CELLTRION INC.-2024CA025931

PATIENT

DRUGS (26)
  1. ADALIMUMAB-AATY [Suspect]
     Active Substance: ADALIMUMAB-AATY
     Indication: Psoriatic arthropathy
     Dosage: 40MG SC Q WEEKLY/ 40 MILLIGRAM, 1 EVERY 1 WEEK
     Route: 058
     Dates: start: 20241016
  2. DICLOFENAC SODIUM [Concomitant]
     Active Substance: DICLOFENAC SODIUM
  3. ATORVASTATIN [Concomitant]
     Active Substance: ATORVASTATIN
     Route: 048
  4. BREO ELLIPTA [Concomitant]
     Active Substance: FLUTICASONE FUROATE\VILANTEROL TRIFENATATE
     Route: 065
  5. CYANOCOBALAMIN [Concomitant]
     Active Substance: CYANOCOBALAMIN
  6. DOCUSATE SODIUM [Concomitant]
     Active Substance: DOCUSATE SODIUM
  7. POLYETHYLENE GLYCOL 3350 [Concomitant]
     Active Substance: POLYETHYLENE GLYCOL 3350
  8. MORPHINE SULFATE [Concomitant]
     Active Substance: MORPHINE SULFATE
  9. OXYCODONE [Concomitant]
     Active Substance: OXYCODONE
  10. PANTOPRAZOLE [Concomitant]
     Active Substance: PANTOPRAZOLE
  11. PERINDOPRIL [Concomitant]
     Active Substance: PERINDOPRIL
  12. PREGABALIN [Concomitant]
     Active Substance: PREGABALIN
  13. SENNOSIDES [Concomitant]
     Active Substance: SENNOSIDES
  14. SULFASALAZINE [Concomitant]
     Active Substance: SULFASALAZINE
     Dates: start: 2020
  15. DULOXETINE [Concomitant]
     Active Substance: DULOXETINE
     Route: 065
  16. TOPIRAMATE [Concomitant]
     Active Substance: TOPIRAMATE
  17. TRAZODONE [Concomitant]
     Active Substance: TRAZODONE HYDROCHLORIDE
  18. TYLENOL [Concomitant]
     Active Substance: ACETAMINOPHEN
  19. UMECLIDINIUM BROMIDE [Concomitant]
     Active Substance: UMECLIDINIUM BROMIDE
  20. VENTOLIN [Concomitant]
     Active Substance: ALBUTEROL SULFATE
  21. VITAMIN D NOS [Concomitant]
     Active Substance: CHOLECALCIFEROL\ERGOCALCIFEROL
  22. DULOXETINE [Concomitant]
     Active Substance: DULOXETINE
  23. MORPHINE SULFATE [Concomitant]
     Active Substance: MORPHINE SULFATE
  24. INCRUSE ELLIPTA [Concomitant]
     Active Substance: UMECLIDINIUM BROMIDE
  25. POLYETHYLENE GLYCOL 3350 [Concomitant]
     Active Substance: POLYETHYLENE GLYCOL 3350
  26. CYANOCOBALAMIN [Concomitant]
     Active Substance: CYANOCOBALAMIN

REACTIONS (3)
  - Psoriatic arthropathy [Not Recovered/Not Resolved]
  - Intentional dose omission [Not Recovered/Not Resolved]
  - Intentional product use issue [Unknown]
